FAERS Safety Report 7159900-4 (Version None)
Quarter: 2010Q4

REPORT INFORMATION
  Report Type: 
  Country: None (occurrence: None)
  Receive Date: 20101214
  Receipt Date: 20101201
  Transmission Date: 20110411
  Serious: Yes (Hospitalization)
  Sender: FDA-Public Use
  Company Number: PHHY2010US81836

PATIENT
  Sex: Female
  Weight: 71.67 kg

DRUGS (1)
  1. EXJADE [Suspect]
     Indication: APLASTIC ANAEMIA
     Dosage: 1000 MG DAILY
     Route: 048
     Dates: start: 20101101

REACTIONS (1)
  - MENTAL DISORDER [None]
